FAERS Safety Report 8044814-8 (Version None)
Quarter: 2012Q1

REPORT INFORMATION
  Report Type: 
  Country: None (occurrence: None)
  Receive Date: 20120113
  Receipt Date: 20120105
  Transmission Date: 20120608
  Serious: Yes (Life-Threatening, Hospitalization)
  Sender: FDA-Public Use
  Company Number: DE-ROCHE-1023905

PATIENT
  Sex: Male
  Weight: 85 kg

DRUGS (4)
  1. METHYLPREDNISOLONE [Concomitant]
     Indication: RHEUMATOID ARTHRITIS
     Route: 048
  2. ACTEMRA [Suspect]
     Indication: RHEUMATOID ARTHRITIS
     Route: 042
     Dates: start: 20101018, end: 20110623
  3. ACTEMRA [Suspect]
     Route: 042
     Dates: start: 20111020, end: 20111123
  4. ARAVA [Concomitant]
     Indication: RHEUMATOID ARTHRITIS
     Route: 048
     Dates: start: 20080201

REACTIONS (5)
  - AORTIC THROMBOSIS [None]
  - KLEBSIELLA SEPSIS [None]
  - RENAL FAILURE [None]
  - PYELONEPHRITIS [None]
  - DIARRHOEA [None]
